FAERS Safety Report 23697555 (Version 1)
Quarter: 2024Q2

REPORT INFORMATION
  Report Type: Spontaneous
  Country: US (occurrence: US)
  Receive Date: 20240402
  Receipt Date: 20240402
  Transmission Date: 20240716
  Serious: Yes (Hospitalization)
  Sender: FDA-Public Use
  Company Number: US-AKCEA THERAPEUTICS, INC.-2024IS002889

PATIENT

DRUGS (1)
  1. TEGSEDI [Suspect]
     Active Substance: INOTERSEN SODIUM
     Indication: Hereditary neuropathic amyloidosis
     Dosage: 284 MILLIGRAM/ 1.5 ML, QW
     Route: 058
     Dates: start: 20190410

REACTIONS (3)
  - Haemoglobin decreased [Unknown]
  - Blood sodium decreased [Unknown]
  - SARS-CoV-2 test positive [Unknown]
